FAERS Safety Report 4616151-2 (Version None)
Quarter: 2005Q1

REPORT INFORMATION
  Report Type: 
  Country: None (occurrence: None)
  Receive Date: 20050321
  Receipt Date: 20050310
  Transmission Date: 20050727
  Serious: No
  Sender: FDA-Public Use
  Company Number: 2005-126316-NL

PATIENT
  Age: 36 Year
  Sex: Female

DRUGS (1)
  1. NUVARING [Suspect]
     Indication: CONTRACEPTION
     Dosage: DF
     Route: 067

REACTIONS (5)
  - CARBUNCLE [None]
  - DRUG INTERACTION [None]
  - FURUNCLE [None]
  - METRORRHAGIA [None]
  - SUBCUTANEOUS ABSCESS [None]
